FAERS Safety Report 11099797 (Version 2)
Quarter: 2015Q2

REPORT INFORMATION
  Report Type: Report from Study
  Country: AU (occurrence: None)
  Receive Date: 20150506
  Receipt Date: 20150511
  Transmission Date: 20150821
  Serious: Yes (Life-Threatening, Other)
  Sender: FDA-Public Use
  Company Number: 2015-11202

PATIENT
  Age: 74 Year
  Sex: Female

DRUGS (1)
  1. EYLEA [Suspect]
     Active Substance: AFLIBERCEPT
     Indication: NEOVASCULAR AGE-RELATED MACULAR DEGENERATION
     Dosage: 2 MG MILLIGRAM(S),  Q4WK, INTRAOCULAR
     Route: 031
     Dates: start: 201304

REACTIONS (5)
  - Inappropriate schedule of drug administration [None]
  - Fall [None]
  - Back injury [None]
  - Cardiac failure [None]
  - Cardiac pacemaker insertion [None]

NARRATIVE: CASE EVENT DATE: 2013
